FAERS Safety Report 9383770 (Version 1)
Quarter: 2013Q3

REPORT INFORMATION
  Report Type: Spontaneous
  Country: IN (occurrence: IN)
  Receive Date: 20130704
  Receipt Date: 20130704
  Transmission Date: 20140515
  Serious: Yes (Life-Threatening, Hospitalization, Other)
  Sender: FDA-Public Use
  Company Number: IN-009507513-1307IND001441

PATIENT
  Age: 67 Year
  Sex: Female
  Weight: 65 kg

DRUGS (9)
  1. JANUMET [Suspect]
     Indication: TYPE 2 DIABETES MELLITUS
     Dosage: 50+ 500, QD X 2MONTHS
     Route: 048
     Dates: end: 201306
  2. INSULIN GLARGINE [Concomitant]
     Dosage: UNK
     Dates: start: 201301
  3. GLIMEPIRIDE [Concomitant]
     Dosage: UNK
     Dates: start: 201301
  4. METFORMIN [Concomitant]
     Dosage: 1 DF, BID
     Dates: start: 201301
  5. LEVOTHYROXINE SODIUM [Concomitant]
     Indication: PRIMARY HYPOTHYROIDISM
     Dosage: 100 MICROGRAM, QD
     Route: 048
  6. AMLODIPINE BESYLATE (+) TELMISARTAN [Concomitant]
     Indication: HYPERTENSION
     Dosage: 40+5 ONCE/DAY
  7. ZOLEDRONATE DISODIUM [Concomitant]
     Indication: OSTEOPOROSIS
     Dosage: 4 MG ONCE/YEAR
     Route: 042
     Dates: start: 201303
  8. ROSUVASTATIN CALCIUM [Concomitant]
     Indication: DYSLIPIDAEMIA
     Dosage: (40 MG), ONCE/DAY
  9. CALCIUM (UNSPECIFIED) [Concomitant]
     Indication: POSTMENOPAUSE
     Dosage: 500 MG, QD

REACTIONS (1)
  - Urinary tract infection [Recovered/Resolved]
